FAERS Safety Report 4773777-3 (Version None)
Quarter: 2005Q3

REPORT INFORMATION
  Report Type: 
  Country: None (occurrence: None)
  Receive Date: 20050919
  Receipt Date: 20050902
  Transmission Date: 20060218
  Serious: Yes (Death)
  Sender: FDA-Public Use
  Company Number: 12245

PATIENT
  Age: 77 Year
  Sex: Female

DRUGS (5)
  1. METHOTREXATE [Suspect]
     Dosage: 7.5 MG WEEKLY PO
     Route: 048
  2. ACETAMINOPHEN W/ CODEINE [Concomitant]
  3. TEMAZEPAM [Concomitant]
  4. THYROXINE [Concomitant]
  5. FOLIC ACID [Concomitant]

REACTIONS (2)
  - PANCYTOPENIA [None]
  - SEPSIS [None]
